FAERS Safety Report 19466453 (Version 1)
Quarter: 2021Q2

REPORT INFORMATION
  Report Type: Spontaneous
  Country: US (occurrence: US)
  Receive Date: 20210628
  Receipt Date: 20210628
  Transmission Date: 20210717
  Serious: No
  Sender: FDA-Public Use
  Company Number: US-ASTRAZENECA-2021A511040

PATIENT
  Sex: Male
  Weight: 88 kg

DRUGS (3)
  1. CHOLESTEROL PILL [Concomitant]
     Active Substance: UNSPECIFIED INGREDIENT
  2. ALBUTEROL RESCUE INHALER [Concomitant]
  3. BEVESPI AEROSPHERE [Suspect]
     Active Substance: FORMOTEROL FUMARATE\GLYCOPYRROLATE
     Indication: PULMONARY CONGESTION
     Dosage: 2 PUFFS IN THE MORNING AND 2 PUFFS IN THE EVENING
     Route: 055

REACTIONS (4)
  - Product dose omission issue [Recovered/Resolved]
  - Weight decreased [Unknown]
  - Illness [Unknown]
  - Dyspnoea [Unknown]
